FAERS Safety Report 18572544 (Version 1)
Quarter: 2020Q4

REPORT INFORMATION
  Report Type: Spontaneous
  Country: US (occurrence: US)
  Receive Date: 20201203
  Receipt Date: 20201203
  Transmission Date: 20210114
  Serious: No
  Sender: FDA-Public Use
  Company Number: US-NOVEN PHARMACEUTICALS, INC.-2020US004474

PATIENT
  Sex: Female
  Weight: 87.08 kg

DRUGS (9)
  1. ALPRAZOLAM. [Concomitant]
     Active Substance: ALPRAZOLAM
     Indication: ANXIETY
     Dosage: 0.5+0.25MG, TID
     Route: 065
  2. RESTASIS [Concomitant]
     Active Substance: CYCLOSPORINE
     Indication: PRODUCT USED FOR UNKNOWN INDICATION
     Route: 065
  3. TESTOSTERONE. [Concomitant]
     Active Substance: TESTOSTERONE
     Indication: HORMONE THERAPY
     Dosage: 1.75 MG, EVERY MORNING
     Route: 060
  4. PROGESTERONE. [Concomitant]
     Active Substance: PROGESTERONE
     Indication: HORMONE THERAPY
     Dosage: 300 MG, DAILY
     Route: 048
  5. DHEA [Concomitant]
     Active Substance: PRASTERONE
     Indication: HORMONE THERAPY
     Dosage: 15MG,EVERY MORNING DAILY
     Route: 048
  6. ADDERALL [Concomitant]
     Active Substance: AMPHETAMINE ASPARTATE\AMPHETAMINE SULFATE\DEXTROAMPHETAMINE SACCHARATE\DEXTROAMPHETAMINE SULFATE
     Indication: ATTENTION DEFICIT HYPERACTIVITY DISORDER
     Dosage: 20MG, BID
     Route: 048
  7. AGX ESTRADIOL FOR MINIVELLE [Suspect]
     Active Substance: ESTRADIOL
     Indication: HOT FLUSH
     Dosage: 0.075 MG/DAILY, 2/WEEK
     Route: 062
  8. BYSTOLIC [Concomitant]
     Active Substance: NEBIVOLOL HYDROCHLORIDE
     Indication: HYPERTENSION
     Dosage: 20 MG, BID
     Route: 065
  9. QUETIAPINE FUMARATE. [Concomitant]
     Active Substance: QUETIAPINE FUMARATE
     Indication: SLEEP DISORDER
     Dosage: 50MG-2 TABLETS NIGHTLY, DAILY
     Route: 048

REACTIONS (6)
  - Sunburn [Unknown]
  - Intentional product use issue [Recovered/Resolved]
  - Product dose omission issue [Recovered/Resolved]
  - Wrong technique in product usage process [Unknown]
  - Product adhesion issue [Not Recovered/Not Resolved]
  - Product administered at inappropriate site [Recovered/Resolved]
